FAERS Safety Report 8871474 (Version 2)
Quarter: 2012Q4

REPORT INFORMATION
  Report Type: Report from Study
  Country: US (occurrence: US)
  Receive Date: 20121029
  Receipt Date: 20121107
  Transmission Date: 20130627
  Serious: Yes (Hospitalization)
  Sender: FDA-Public Use
  Company Number: US-JNJFOC-20121014585

PATIENT
  Sex: Male
  Weight: 41.4 kg

DRUGS (10)
  1. REMICADE [Suspect]
     Indication: CROHN^S DISEASE
     Route: 042
     Dates: start: 20100202
  2. REMICADE [Suspect]
     Indication: CROHN^S DISEASE
     Route: 042
     Dates: start: 20120927
  3. VITAMIN D3 [Concomitant]
  4. VITAMIN B6 [Concomitant]
  5. WELLBUTRIN [Concomitant]
  6. GROWTH HORMONE [Concomitant]
  7. FERROUS SULFATE [Concomitant]
  8. TESTOSTERONE [Concomitant]
  9. SERTRALINE [Concomitant]
  10. ZYRTEC [Concomitant]

REACTIONS (2)
  - Crohn^s disease [Recovered/Resolved]
  - Constipation [Recovered/Resolved]
